FAERS Safety Report 12354474 (Version 1)
Quarter: 2016Q2

REPORT INFORMATION
  Report Type: Spontaneous
  Country: US (occurrence: US)
  Receive Date: 20160511
  Receipt Date: 20160511
  Transmission Date: 20160815
  Serious: Yes (Other)
  Sender: FDA-Public Use
  Company Number: US-BAYER-2016-087687

PATIENT
  Age: 30 Year
  Sex: Male

DRUGS (2)
  1. GADAVIST [Suspect]
     Active Substance: GADOBUTROL
     Indication: NUCLEAR MAGNETIC RESONANCE IMAGING BRAIN
     Dosage: 7.5 ML, UNK
     Route: 042
     Dates: start: 20160421, end: 20160421
  2. NORMAL SALINE [Concomitant]
     Active Substance: SODIUM CHLORIDE
     Dosage: UNK
     Route: 042
     Dates: start: 20160421

REACTIONS (5)
  - Nausea [None]
  - Loss of consciousness [None]
  - Pallor [None]
  - Syncope [None]
  - Fall [None]

NARRATIVE: CASE EVENT DATE: 20160421
